FAERS Safety Report 4984858-3 (Version None)
Quarter: 2006Q2

REPORT INFORMATION
  Report Type: 
  Country: None (occurrence: None)
  Receive Date: 20060427
  Receipt Date: 20041027
  Transmission Date: 20061013
  Serious: Yes (Disabling)
  Sender: FDA-Public Use
  Company Number: US-ROCHE-384838

PATIENT
  Age: 24 Year
  Sex: Female
  Weight: 46.3 kg

DRUGS (5)
  1. ACCUTANE [Suspect]
     Indication: ACNE
     Route: 048
     Dates: start: 19990915, end: 19991115
  2. ACCUTANE [Suspect]
     Dosage: REPORTED AS 40 MG AND 10 MG
     Route: 048
     Dates: start: 19991115, end: 20000215
  3. ACCUTANE [Suspect]
     Dosage: REPORTED AS 40 MG AND 60 MG
     Route: 048
     Dates: start: 20000215, end: 20000315
  4. ACCUTANE [Suspect]
     Dosage: REPORTED AS 40 MG AND 10 MG
     Route: 048
     Dates: start: 20000315, end: 20000415
  5. ORTHO TRI-CYCLEN [Concomitant]
     Route: 048
     Dates: start: 19990615

REACTIONS (47)
  - ABDOMINAL DISTENSION [None]
  - ABDOMINAL PAIN [None]
  - ACNE [None]
  - ANOREXIA [None]
  - ANXIETY [None]
  - ASTHMA [None]
  - BLOOD GLUCOSE INCREASED [None]
  - CHILLS [None]
  - COLITIS [None]
  - COLITIS ULCERATIVE [None]
  - DEHYDRATION [None]
  - DEPRESSION [None]
  - DERMATITIS [None]
  - DIARRHOEA [None]
  - DRY SKIN [None]
  - FATIGUE [None]
  - FIBROSIS [None]
  - FLATULENCE [None]
  - GASTROENTERITIS [None]
  - GASTROINTESTINAL DISORDER [None]
  - HAEMATOCHEZIA [None]
  - HAEMORRHOIDS [None]
  - HAND DERMATITIS [None]
  - HEADACHE [None]
  - HYPERSENSITIVITY [None]
  - INFLAMMATION [None]
  - INFLAMMATORY BOWEL DISEASE [None]
  - INTESTINAL HAEMORRHAGE [None]
  - IRRITABLE BOWEL SYNDROME [None]
  - MULTI-ORGAN DISORDER [None]
  - MUSCLE SPASMS [None]
  - NAUSEA [None]
  - OCCULT BLOOD POSITIVE [None]
  - PARTNER STRESS [None]
  - POUCHITIS [None]
  - PYREXIA [None]
  - RECTAL HAEMORRHAGE [None]
  - RECTAL TENESMUS [None]
  - RED BLOOD CELL SEDIMENTATION RATE INCREASED [None]
  - RENAL FAILURE [None]
  - RHINITIS [None]
  - RHINITIS ALLERGIC [None]
  - SINUSITIS [None]
  - URINARY TRACT INFECTION [None]
  - VOMITING [None]
  - WEIGHT DECREASED [None]
  - WHITE BLOOD CELL COUNT INCREASED [None]
